FAERS Safety Report 8955881 (Version 2)
Quarter: 2013Q1

REPORT INFORMATION
  Report Type: Spontaneous
  Country: JP (occurrence: JP)
  Receive Date: 20121210
  Receipt Date: 20130206
  Transmission Date: 20140127
  Serious: Yes (Other)
  Sender: FDA-Public Use
  Company Number: JP-PFIZER INC-2012303679

PATIENT
  Age: 7 Decade
  Sex: Female

DRUGS (1)
  1. SALAZOPYRIN [Suspect]
     Dosage: UNK

REACTIONS (1)
  - Renal impairment [Unknown]
